FAERS Safety Report 13975072 (Version 1)
Quarter: 2017Q3

REPORT INFORMATION
  Report Type: Spontaneous
  Country: US (occurrence: US)
  Receive Date: 20170914
  Receipt Date: 20170914
  Transmission Date: 20171128
  Serious: No
  Sender: FDA-Public Use
  Company Number: US-ASTELLAS-2017US004219

PATIENT
  Age: 73 Year
  Sex: Male

DRUGS (5)
  1. XTANDI [Suspect]
     Active Substance: ENZALUTAMIDE
     Indication: PROSTATIC SPECIFIC ANTIGEN INCREASED
     Dosage: 40 MG, PILL EVERY 05 HOURS (4 TIMES DAILY)
     Route: 065
     Dates: start: 20170122
  2. XTANDI [Suspect]
     Active Substance: ENZALUTAMIDE
     Indication: METASTASES TO BONE
     Dosage: 160 MG, ONCE DAILY AT NIGHT
     Route: 065
     Dates: start: 20170129
  3. XTANDI [Suspect]
     Active Substance: ENZALUTAMIDE
     Indication: HORMONE-REFRACTORY PROSTATE CANCER
     Dosage: 40MG PILL EVERY 05 HOURS
     Route: 065
     Dates: start: 20170202, end: 20170404
  4. XTANDI [Suspect]
     Active Substance: ENZALUTAMIDE
     Dosage: 80 MG, OTHER (40 MG IN AM AND 40 MG AT NIGHT)
     Route: 065
     Dates: start: 20170426
  5. XTANDI [Suspect]
     Active Substance: ENZALUTAMIDE
     Indication: PROSTATE CANCER METASTATIC
     Route: 065
     Dates: start: 201612

REACTIONS (12)
  - Muscle spasms [Recovering/Resolving]
  - Nausea [Unknown]
  - Somnolence [Unknown]
  - Insomnia [Recovered/Resolved]
  - Nausea [Unknown]
  - Vision blurred [Not Recovered/Not Resolved]
  - Visual impairment [Unknown]
  - Somnolence [Unknown]
  - Muscle spasms [Recovered/Resolved]
  - Sleep disorder [Unknown]
  - Diarrhoea [Unknown]
  - Wrong technique in product usage process [Unknown]

NARRATIVE: CASE EVENT DATE: 201701
